FAERS Safety Report 15931317 (Version 2)
Quarter: 2019Q1

REPORT INFORMATION
  Report Type: Spontaneous
  Country: US (occurrence: US)
  Receive Date: 20190207
  Receipt Date: 20190213
  Transmission Date: 20190417
  Serious: Yes (Hospitalization, Other)
  Sender: FDA-Public Use
  Company Number: US-ASTRAZENECA-2018SF14773

PATIENT
  Age: 12055 Day
  Sex: Female

DRUGS (26)
  1. LIDOCAINE. [Concomitant]
     Active Substance: LIDOCAINE
  2. MELOXICAM. [Concomitant]
     Active Substance: MELOXICAM
  3. NEXIUM [Suspect]
     Active Substance: ESOMEPRAZOLE MAGNESIUM
     Route: 048
     Dates: start: 20090526, end: 20150720
  4. PROTONIX [Suspect]
     Active Substance: PANTOPRAZOLE SODIUM
     Route: 065
     Dates: start: 20090526, end: 20150720
  5. GABAPENTIN. [Concomitant]
     Active Substance: GABAPENTIN
  6. CIPROFLOXACIN. [Concomitant]
     Active Substance: CIPROFLOXACIN
  7. CARISOPRODOL. [Concomitant]
     Active Substance: CARISOPRODOL
  8. CYCLOBENZAPRINE. [Concomitant]
     Active Substance: CYCLOBENZAPRINE
  9. IBUPROFEN. [Concomitant]
     Active Substance: IBUPROFEN
  10. CEPHALEXIN. [Concomitant]
     Active Substance: CEPHALEXIN
  11. HYDROCODONE/ACETAMINOPHEN [Concomitant]
     Active Substance: ACETAMINOPHEN\HYDROCODONE
  12. PROTONIX [Suspect]
     Active Substance: PANTOPRAZOLE SODIUM
     Dosage: GENERIC
     Route: 065
     Dates: start: 20130926
  13. CLONAZEPAM. [Concomitant]
     Active Substance: CLONAZEPAM
  14. OXYCODONE [Concomitant]
     Active Substance: OXYCODONE
  15. HYDROMORPHONE [Concomitant]
     Active Substance: HYDROMORPHONE
  16. NEXIUM [Suspect]
     Active Substance: ESOMEPRAZOLE MAGNESIUM
     Route: 065
     Dates: start: 20090526
  17. AMOXICILLIN. [Concomitant]
     Active Substance: AMOXICILLIN
  18. PROMETHAZINE [Concomitant]
     Active Substance: PROMETHAZINE\PROMETHAZINE HYDROCHLORIDE
  19. FENTANYL. [Concomitant]
     Active Substance: FENTANYL
  20. TRAMADOL. [Concomitant]
     Active Substance: TRAMADOL
  21. LISINOPRIL-HCTZ [Concomitant]
     Active Substance: HYDROCHLOROTHIAZIDE\LISINOPRIL
  22. PROMETHAZINE [Concomitant]
     Active Substance: PROMETHAZINE\PROMETHAZINE HYDROCHLORIDE
  23. OPANA [Concomitant]
     Active Substance: OXYMORPHONE HYDROCHLORIDE
  24. ALPRAZOLAM. [Concomitant]
     Active Substance: ALPRAZOLAM
  25. CARAFATE [Concomitant]
     Active Substance: SUCRALFATE
  26. TIZANIDINE. [Concomitant]
     Active Substance: TIZANIDINE

REACTIONS (2)
  - Renal failure [Unknown]
  - Acute kidney injury [Unknown]

NARRATIVE: CASE EVENT DATE: 20150716
